FAERS Safety Report 12569020 (Version 1)
Quarter: 2016Q3

REPORT INFORMATION
  Report Type: Spontaneous
  Country: US (occurrence: US)
  Receive Date: 20160719
  Receipt Date: 20160719
  Transmission Date: 20161109
  Serious: No
  Sender: FDA-Public Use
  Company Number: US-BAYER-2016-139472

PATIENT
  Age: 85 Year
  Sex: Female

DRUGS (1)
  1. MIRALAX [Suspect]
     Active Substance: POLYETHYLENE GLYCOL 3350
     Indication: CONSTIPATION
     Dosage: 1 DF, FOR ABOUT A YEAR USING IT FOR 4 DAYS AND THEN STOPPING FOR 3 DAYS
     Route: 048

REACTIONS (2)
  - Circumstance or information capable of leading to medication error [None]
  - Product use issue [None]
